FAERS Safety Report 6254163-6 (Version None)
Quarter: 2009Q3

REPORT INFORMATION
  Report Type: 
  Country: None (occurrence: None)
  Receive Date: 20090702
  Receipt Date: 20090623
  Transmission Date: 20100115
  Serious: Yes (Hospitalization)
  Sender: FDA-Public Use
  Company Number: PHHO2009US07824

PATIENT
  Sex: Male
  Weight: 55.9 kg

DRUGS (12)
  1. RAD 666 RAD+TAB [Suspect]
     Indication: NEOPLASM MALIGNANT
     Dosage: 5 MG EVERY MON, WED AND FRI
     Route: 048
     Dates: start: 20090130
  2. BEVACIZUMAB [Concomitant]
     Indication: NEUROENDOCRINE TUMOUR
     Dosage: 10 MG /KG Q 2 WEEKS(624 MG)
     Route: 048
     Dates: start: 20090130
  3. PANITUMUMAB [Concomitant]
     Indication: NEUROENDOCRINE TUMOUR
     Dosage: UNK
     Route: 048
     Dates: start: 20090130
  4. ZANTAC [Concomitant]
  5. ENALAPRIL [Concomitant]
  6. HYDROCHLOROTHIAZIDE [Concomitant]
  7. ZOFRAN [Concomitant]
  8. MEGACE [Concomitant]
  9. DILAUDID [Concomitant]
  10. CLARITIN [Concomitant]
  11. SENOKOT [Concomitant]
  12. ANALGESICS [Concomitant]

REACTIONS (3)
  - ABDOMINAL PAIN [None]
  - HAEMATURIA [None]
  - PROTEINURIA [None]
